FAERS Safety Report 22604025 (Version 4)
Quarter: 2023Q4

REPORT INFORMATION
  Report Type: Spontaneous
  Country: US (occurrence: US)
  Receive Date: 20230615
  Receipt Date: 20231116
  Transmission Date: 20240109
  Serious: Yes (Other)
  Sender: FDA-Public Use
  Company Number: US-EXELIXIS-CABO-22058691

PATIENT
  Age: 63 Year
  Sex: Male

DRUGS (15)
  1. OPDIVO [Suspect]
     Active Substance: NIVOLUMAB
     Indication: Renal cell carcinoma
     Dosage: UNK
     Dates: start: 202209, end: 202303
  2. CABOMETYX [Suspect]
     Active Substance: CABOZANTINIB S-MALATE
     Indication: Renal cell carcinoma
     Dosage: 40 MG, QD
     Route: 048
     Dates: start: 202209
  3. CABOMETYX [Suspect]
     Active Substance: CABOZANTINIB S-MALATE
     Dosage: 20 MG, QD
     Route: 048
     Dates: start: 2022
  4. PREDNISONE [Suspect]
     Active Substance: PREDNISONE
     Indication: Renal cancer
     Dosage: UNK
  5. CRESTOR [Concomitant]
     Active Substance: ROSUVASTATIN CALCIUM
     Indication: Product used for unknown indication
  6. ASPIRIN [Concomitant]
     Active Substance: ASPIRIN
     Indication: Product used for unknown indication
  7. OMEPRAZOLE [Concomitant]
     Active Substance: OMEPRAZOLE
     Indication: Product used for unknown indication
  8. AMLODIPINE [Concomitant]
     Active Substance: AMLODIPINE BESYLATE
     Indication: Product used for unknown indication
  9. HYDROCHLOROTHIAZIDE [Concomitant]
     Active Substance: HYDROCHLOROTHIAZIDE
     Indication: Product used for unknown indication
  10. LISINOPRIL [Concomitant]
     Active Substance: LISINOPRIL
     Indication: Product used for unknown indication
  11. COREG [Concomitant]
     Active Substance: CARVEDILOL
     Indication: Product used for unknown indication
  12. NOVOLOG [Concomitant]
     Active Substance: INSULIN ASPART
     Indication: Product used for unknown indication
  13. TRESIBA [Concomitant]
     Active Substance: INSULIN DEGLUDEC
     Indication: Product used for unknown indication
  14. TRULICITY [Concomitant]
     Active Substance: DULAGLUTIDE
     Indication: Product used for unknown indication
  15. PROCHLORPERAZINE MALEATE [Concomitant]
     Active Substance: PROCHLORPERAZINE MALEATE
     Indication: Product used for unknown indication

REACTIONS (21)
  - Quadriparesis [Recovering/Resolving]
  - Tongue ulceration [Recovering/Resolving]
  - Pain in extremity [Recovering/Resolving]
  - Stomatitis [Recovering/Resolving]
  - Taste disorder [Recovering/Resolving]
  - Blood pressure increased [Recovering/Resolving]
  - Fatigue [Recovering/Resolving]
  - Diarrhoea [Recovering/Resolving]
  - Muscle spasms [Recovering/Resolving]
  - Blood glucose increased [Recovering/Resolving]
  - Dyspnoea [Not Recovered/Not Resolved]
  - Fluid retention [Unknown]
  - Depressed mood [Unknown]
  - Swelling [Not Recovered/Not Resolved]
  - Palmar-plantar erythrodysaesthesia syndrome [Unknown]
  - Decreased appetite [Unknown]
  - Nausea [Unknown]
  - Diplegia [Not Recovered/Not Resolved]
  - Abdominal distension [Not Recovered/Not Resolved]
  - Skin discolouration [Not Recovered/Not Resolved]
  - Laboratory test abnormal [Not Recovered/Not Resolved]

NARRATIVE: CASE EVENT DATE: 20230801
